FAERS Safety Report 16809112 (Version 2)
Quarter: 2025Q3

REPORT INFORMATION
  Report Type: Report from Study
  Country: EU (occurrence: EU)
  Receive Date: 20190916
  Receipt Date: 20250702
  Transmission Date: 20251021
  Serious: Yes (Hospitalization)
  Sender: TEVA
  Company Number: EU-EMA-DD-20190830-KHARE_I-080948

PATIENT
  Sex: Male
  Weight: 87.5 kg

DRUGS (17)
  1. PREDNISOLONE [Suspect]
     Active Substance: PREDNISOLONE
     Indication: Acute myeloid leukaemia
     Dosage: 10 MILLIGRAM, QD
     Route: 065
     Dates: start: 20190612, end: 20190612
  2. PREDNISOLONE [Suspect]
     Active Substance: PREDNISOLONE
     Indication: Acute myeloid leukaemia
     Dosage: 10 MILLIGRAM, QD
     Route: 065
     Dates: start: 20190503, end: 20190503
  3. ONDANSETRON [Concomitant]
     Active Substance: ONDANSETRON
     Indication: Antiemetic supportive care
     Route: 065
     Dates: start: 20160612, end: 20190617
  4. METHOTREXATE [Suspect]
     Active Substance: METHOTREXATE
     Indication: Acute myeloid leukaemia
     Dosage: 12 MILLIGRAM, QD
     Route: 065
     Dates: start: 20190612, end: 20190612
  5. METHOTREXATE [Suspect]
     Active Substance: METHOTREXATE
     Indication: Acute myeloid leukaemia
     Dosage: 12 MILLIGRAM, QD
     Route: 065
     Dates: start: 20190503, end: 20190503
  6. VITAMIN B6 [Concomitant]
     Active Substance: PYRIDOXINE HYDROCHLORIDE
     Indication: Prophylaxis
     Dates: start: 20190612, end: 20190616
  7. ARTELAC [Concomitant]
     Indication: Prophylaxis
     Route: 065
     Dates: start: 20190612, end: 20190617
  8. HYDROCHLOROTHIAZIDE\RAMIPRIL [Concomitant]
     Active Substance: HYDROCHLOROTHIAZIDE\RAMIPRIL
     Indication: Hypertension
     Route: 065
     Dates: start: 20190512
  9. VITAMIN D [Concomitant]
     Active Substance: VITAMIN D NOS
     Indication: Hypovitaminosis
     Route: 065
     Dates: start: 20190612
  10. CYTARABINE [Suspect]
     Active Substance: CYTARABINE
     Indication: Acute myeloid leukaemia
     Dosage: 4160 MILLIGRAM, QD
     Route: 065
     Dates: start: 20190612, end: 20190616
  11. CYTARABINE [Suspect]
     Active Substance: CYTARABINE
     Indication: Acute myeloid leukaemia
     Route: 065
     Dates: start: 20190504, end: 20190508
  12. CYTARABINE [Suspect]
     Active Substance: CYTARABINE
     Indication: Acute myeloid leukaemia
     Dosage: 30 MILLIGRAM, QD
     Route: 065
     Dates: start: 20190503, end: 20190503
  13. PANTOPRAZOLE SODIUM [Concomitant]
     Active Substance: PANTOPRAZOLE SODIUM
     Indication: Product used for unknown indication
     Route: 065
  14. DIMENHYDRINATE [Concomitant]
     Active Substance: DIMENHYDRINATE
     Indication: Antiemetic supportive care
     Route: 065
     Dates: start: 20190612, end: 20190617
  15. FLUDARABINE [Suspect]
     Active Substance: FLUDARABINE PHOSPHATE
     Indication: Acute myeloid leukaemia
     Dosage: 61.40 MILLIGRAM, QD
     Route: 065
     Dates: start: 20190612, end: 20190616
  16. FLUDARABINE [Suspect]
     Active Substance: FLUDARABINE PHOSPHATE
     Indication: Acute myeloid leukaemia
     Dosage: 64.20 MILLIGRAM, QD
     Route: 065
     Dates: start: 20190504, end: 20190508
  17. MYLOTARG [Suspect]
     Active Substance: GEMTUZUMAB OZOGAMICIN
     Indication: Acute myeloid leukaemia
     Dosage: 963 MILLIGRAM, QD
     Route: 065
     Dates: start: 20190505, end: 20190505

REACTIONS (2)
  - Bone marrow failure [Unknown]
  - Infection [Unknown]

NARRATIVE: CASE EVENT DATE: 20190626
